FAERS Safety Report 4816749-2 (Version None)
Quarter: 2005Q4

REPORT INFORMATION
  Report Type: 
  Country: None (occurrence: None)
  Receive Date: 20051028
  Receipt Date: 20051017
  Transmission Date: 20060501
  Serious: Yes (Other)
  Sender: FDA-Public Use
  Company Number: 2005143293

PATIENT
  Age: 13 Year
  Sex: Female

DRUGS (3)
  1. ZITHROMAX [Suspect]
     Indication: LUNG INFECTION
     Dosage: ORAL
     Route: 048
     Dates: start: 20051013, end: 20051014
  2. ALBUTEROL [Concomitant]
  3. . [Concomitant]

REACTIONS (17)
  - ABDOMINAL DISCOMFORT [None]
  - BODY TEMPERATURE DECREASED [None]
  - CHEST PAIN [None]
  - CHILLS [None]
  - DIARRHOEA [None]
  - HEART RATE INCREASED [None]
  - HOT FLUSH [None]
  - JOINT STIFFNESS [None]
  - LUNG DISORDER [None]
  - MALAISE [None]
  - PAIN [None]
  - PARAESTHESIA [None]
  - PYREXIA [None]
  - STOMACH DISCOMFORT [None]
  - TRISMUS [None]
  - VOMITING [None]
  - WEIGHT DECREASED [None]
